FAERS Safety Report 11204928 (Version 1)
Quarter: 2015Q2

REPORT INFORMATION
  Report Type: Spontaneous
  Country: IT (occurrence: IT)
  Receive Date: 20150622
  Receipt Date: 20150622
  Transmission Date: 20150821
  Serious: Yes (Hospitalization)
  Sender: FDA-Public Use
  Company Number: IT-ROCHE-1595081

PATIENT
  Age: 49 Year
  Sex: Female

DRUGS (2)
  1. VALIUM [Suspect]
     Active Substance: DIAZEPAM
     Indication: PRODUCT USED FOR UNKNOWN INDICATION
     Dosage: 2 MG HARD CAPSULES-30 CAPSULES
     Route: 048
     Dates: start: 20150606, end: 20150606
  2. TAVOR [Suspect]
     Active Substance: LORAZEPAM
     Indication: PRODUCT USED FOR UNKNOWN INDICATION
     Dosage: 1 MG TABLETS-20 TABLETS
     Route: 048
     Dates: start: 20150606, end: 20150606

REACTIONS (3)
  - Sopor [Recovering/Resolving]
  - Bradyphrenia [Recovering/Resolving]
  - Bradykinesia [Recovering/Resolving]

NARRATIVE: CASE EVENT DATE: 20150606
